FAERS Safety Report 18759595 (Version 1)
Quarter: 2021Q1

REPORT INFORMATION
  Report Type: Spontaneous
  Country: US (occurrence: US)
  Receive Date: 20210120
  Receipt Date: 20210120
  Transmission Date: 20210419
  Serious: Yes (Hospitalization, Other)
  Sender: FDA-Public Use
  Company Number: US-IPCA LABORATORIES LIMITED-IPC-2021-US-000108

PATIENT

DRUGS (1)
  1. HYDROXYCHLOROQUINE [Suspect]
     Active Substance: HYDROXYCHLOROQUINE
     Indication: PRODUCT USED FOR UNKNOWN INDICATION
     Dosage: 200 MILLIGRAM, BID
     Route: 065

REACTIONS (6)
  - Myocardial infarction [Unknown]
  - Cardiomyopathy [Unknown]
  - Cardiogenic shock [Unknown]
  - Tricuspid valve incompetence [Unknown]
  - Ventricular dysfunction [Unknown]
  - Cardiotoxicity [Unknown]
